FAERS Safety Report 4453226-5 (Version None)
Quarter: 2004Q3

REPORT INFORMATION
  Report Type: 
  Country: None (occurrence: None)
  Receive Date: 20040901
  Receipt Date: 20040722
  Transmission Date: 20050211
  Serious: Yes (Hospitalization)
  Sender: FDA-Public Use
  Company Number: US080277

PATIENT
  Age: 78 Year
  Sex: Male

DRUGS (5)
  1. ENBREL [Suspect]
     Indication: RHEUMATOID ARTHRITIS
     Dosage: 2 IN 1 WEEKS, SC
     Route: 058
     Dates: start: 20030601
  2. HYDROXYCHLOROQUINE PHOSPHATE [Concomitant]
  3. VALDECOXIB [Concomitant]
  4. PREDNISONE [Concomitant]
  5. WARFARIN SODIUM [Concomitant]

REACTIONS (1)
  - CONVULSION [None]
